FAERS Safety Report 5876755-6 (Version None)
Quarter: 2008Q3

REPORT INFORMATION
  Report Type: 
  Country: None (occurrence: None)
  Receive Date: 20080910
  Receipt Date: 20080904
  Transmission Date: 20090109
  Serious: Yes (Other)
  Sender: FDA-Public Use
  Company Number: US-ASTRAZENECA-2008UW18231

PATIENT
  Sex: Female

DRUGS (2)
  1. ARIMIDEX [Suspect]
     Indication: BREAST CANCER STAGE III
     Route: 048
     Dates: start: 20070301
  2. ARIMIDEX [Suspect]
     Route: 048

REACTIONS (5)
  - ASTHENIA [None]
  - BLINDNESS UNILATERAL [None]
  - DIZZINESS [None]
  - HOT FLUSH [None]
  - MACULAR HOLE [None]
